FAERS Safety Report 7988699-4 (Version None)
Quarter: 2011Q4

REPORT INFORMATION
  Report Type: 
  Country: None (occurrence: None)
  Receive Date: 20111218
  Receipt Date: 20111206
  Transmission Date: 20120403
  Serious: Yes (Hospitalization)
  Sender: FDA-Public Use
  Company Number: US-ELI_LILLY_AND_COMPANY-US201112002561

PATIENT
  Age: 69 Year
  Sex: Female

DRUGS (3)
  1. BETA BLOCKING AGENTS [Concomitant]
  2. PROZAC [Suspect]
     Indication: EMOTIONAL DISORDER
     Dosage: UNK
  3. HYDROCHLOROTHIAZIDE [Concomitant]

REACTIONS (1)
  - SPINAL DISORDER [None]
